FAERS Safety Report 5569972-6 (Version None)
Quarter: 2007Q4

REPORT INFORMATION
  Report Type: 
  Country: None (occurrence: None)
  Receive Date: 20071217
  Receipt Date: 20071203
  Transmission Date: 20080405
  Serious: Yes (Death)
  Sender: FDA-Public Use
  Company Number: GXKR2007PL10449

PATIENT
  Age: 25 Year
  Sex: Male

DRUGS (1)
  1. LEKOPTIN (NGX)(VERAPAMIL) UNKNOWN, 80MG [Suspect]
     Dosage: 10 DF, ONCE/SINGLE

REACTIONS (7)
  - ATRIOVENTRICULAR BLOCK COMPLETE [None]
  - BRADYCARDIA [None]
  - CARDIAC ARREST [None]
  - CARDIOGENIC SHOCK [None]
  - CIRCULATORY COLLAPSE [None]
  - INTENTIONAL OVERDOSE [None]
  - VOMITING [None]
